FAERS Safety Report 5074553-7 (Version None)
Quarter: 2006Q3

REPORT INFORMATION
  Report Type: 
  Country: None (occurrence: None)
  Receive Date: 20060803
  Receipt Date: 20060724
  Transmission Date: 20061208
  Serious: Yes (Death, Hospitalization)
  Sender: FDA-Public Use
  Company Number: 430025M06USA

PATIENT
  Age: 57 Year
  Sex: Male
  Weight: 111.1 kg

DRUGS (28)
  1. NOVANTRONE [Suspect]
     Indication: ACUTE MYELOID LEUKAEMIA
     Dosage: 18 MG, 1 IN 1 DAYS; INTRAVENOUS, 18 MG, 1 IN 1 DAYS; INTRAVENOUS
     Route: 042
     Dates: start: 20060331, end: 20060404
  2. NOVANTRONE [Suspect]
     Indication: ACUTE MYELOID LEUKAEMIA
     Dosage: 18 MG, 1 IN 1 DAYS; INTRAVENOUS, 18 MG, 1 IN 1 DAYS; INTRAVENOUS
     Route: 042
     Dates: start: 20060310, end: 20060615
  3. CEP -701 (INVESTIGATIONAL DRUG) [Suspect]
     Dosage: 80 MG, 2 IN 1 DAYS; ORAL
     Route: 048
     Dates: start: 20060317, end: 20060424
  4. ETOPOSIDE [Concomitant]
  5. CYTARABINE [Concomitant]
  6. ACETAMINOPHEN [Concomitant]
  7. ACYCLOVIR (ACICLOVIR /00587301/) [Concomitant]
  8. ALLOPURINOL [Concomitant]
  9. AZTREONAM [Concomitant]
  10. CIPROFLOXACIN (CIPROFLOXACIN /00697201/) [Concomitant]
  11. DIPHENHYDRAMINE HCL [Concomitant]
  12. ESOMEPRAZOLE MAGNESIUM [Concomitant]
  13. FUROSEMIDE (FUROSEMIDE /00032601/) [Concomitant]
  14. HYDROCHLOROTHIAZIDE [Concomitant]
  15. METRONIDAZOLE (METRONIDAZOLE /00012501/) [Concomitant]
  16. NYSTATIN [Concomitant]
  17. VANCOMYCIN (VANCOMYCIN /00314401/) [Concomitant]
  18. AMILLIN (AMPICILLIN TRIHYDRATE) [Concomitant]
  19. AMPHOTERICIN B [Concomitant]
  20. ASPIRIN [Concomitant]
  21. AZITHROMYCIN [Concomitant]
  22. CASPOFUNGIN [Concomitant]
  23. LINEZOLID [Concomitant]
  24. LOPERAMIDE (LOPERAMIDE /00384301) [Concomitant]
  25. STREPTOMYCIN (STREPTOMYCIN /00051001/) [Concomitant]
  26. NEUPOGEN [Concomitant]
  27. VITAMIN SUPPLEMENTS (VITAMINS) [Concomitant]
  28. MEDICATED MOUTH WASH [Concomitant]

REACTIONS (5)
  - BLOOD CULTURE POSITIVE [None]
  - ENTEROCOCCAL INFECTION [None]
  - PANCYTOPENIA [None]
  - SEPTIC SHOCK [None]
  - TRICHOSPORON INFECTION [None]
